FAERS Safety Report 6218922-8 (Version None)
Quarter: 2009Q2

REPORT INFORMATION
  Report Type: 
  Country: None (occurrence: None)
  Receive Date: 20090608
  Receipt Date: 20090604
  Transmission Date: 20091009
  Serious: Yes (Death)
  Sender: FDA-Public Use
  Company Number: US-B.I. PHARMACEUTICALS,INC./RIDGEFIELD-2009-BP-06786BP

PATIENT
  Sex: Female

DRUGS (1)
  1. MICARDIS HCT [Suspect]
     Indication: ESSENTIAL HYPERTENSION

REACTIONS (2)
  - ANAPHYLACTIC SHOCK [None]
  - ANGIOEDEMA [None]
